FAERS Safety Report 9614456 (Version 1)
Quarter: 2013Q4

REPORT INFORMATION
  Report Type: Spontaneous
  Country: US (occurrence: None)
  Receive Date: 20131009
  Receipt Date: 20131009
  Transmission Date: 20140711
  Serious: Yes (Hospitalization)
  Sender: FDA-Public Use
  Company Number: None

PATIENT
  Age: 16 Year
  Sex: Male
  Weight: 96.5 kg

DRUGS (4)
  1. DEPAKOTE ER [Suspect]
     Indication: BIPOLAR DISORDER
     Route: 048
  2. QUETIAPINE XR [Concomitant]
  3. SERTRALINE [Concomitant]
  4. PANTOPRAZOLE [Concomitant]

REACTIONS (1)
  - Pancreatitis acute [None]
